FAERS Safety Report 9671386 (Version 2)
Quarter: 2013Q4

REPORT INFORMATION
  Report Type: Spontaneous
  Country: IT (occurrence: IT)
  Receive Date: 20131106
  Receipt Date: 20131219
  Transmission Date: 20140711
  Serious: Yes (Hospitalization)
  Sender: FDA-Public Use
  Company Number: IT-ROCHE-1299681

PATIENT
  Age: 46 Year
  Sex: Male

DRUGS (1)
  1. ROCEFIN [Suspect]
     Indication: PYREXIA
     Route: 030
     Dates: start: 20130902, end: 20130907

REACTIONS (2)
  - Diarrhoea [Recovered/Resolved]
  - Rash [Recovered/Resolved]
